FAERS Safety Report 14001647 (Version 1)
Quarter: 2017Q3

REPORT INFORMATION
  Report Type: Spontaneous
  Country: DE (occurrence: DE)
  Receive Date: 20170922
  Receipt Date: 20170922
  Transmission Date: 20171128
  Serious: Yes (Other)
  Sender: FDA-Public Use
  Company Number: PHHY2017DE137414

PATIENT
  Age: 29 Year
  Sex: Female

DRUGS (1)
  1. GILENYA [Suspect]
     Active Substance: FINGOLIMOD HYDROCHLORIDE
     Indication: PRODUCT USED FOR UNKNOWN INDICATION
     Route: 065
     Dates: start: 201202

REACTIONS (11)
  - Dysarthria [Unknown]
  - Dizziness [Unknown]
  - Balance disorder [Unknown]
  - Central nervous system lesion [Unknown]
  - Dysaesthesia [Unknown]
  - Monoparesis [Unknown]
  - Herpes zoster [Unknown]
  - Gait disturbance [Unknown]
  - Diplopia [Unknown]
  - Cerebellar syndrome [Unknown]
  - Saccadic eye movement [Unknown]

NARRATIVE: CASE EVENT DATE: 2012
